FAERS Safety Report 4980753-4 (Version None)
Quarter: 2006Q2

REPORT INFORMATION
  Report Type: 
  Country: None (occurrence: None)
  Receive Date: 20060424
  Receipt Date: 20011004
  Transmission Date: 20061013
  Serious: Yes (Hospitalization, Disabling)
  Sender: FDA-Public Use
  Company Number: CH-MERCK-01108204

PATIENT
  Age: 63 Year
  Sex: Female
  Weight: 77 kg

DRUGS (5)
  1. VIOXX [Suspect]
     Indication: MUSCULOSKELETAL PAIN
     Route: 048
     Dates: start: 20010608, end: 20010627
  2. VIOXX [Suspect]
     Route: 048
     Dates: start: 20010713
  3. CITALOPRAM HYDROBROMIDE [Concomitant]
     Indication: MUSCULOSKELETAL PAIN
     Route: 048
     Dates: start: 20010713, end: 20011015
  4. PREDNISONE [Concomitant]
     Indication: MUSCULOSKELETAL PAIN
     Route: 048
     Dates: start: 20010713, end: 20010701
  5. OXAZEPAM [Concomitant]
     Route: 048
     Dates: start: 20010713, end: 20011015

REACTIONS (18)
  - ARTHROPATHY [None]
  - BLOOD URINE [None]
  - DEPRESSED LEVEL OF CONSCIOUSNESS [None]
  - DEPRESSION [None]
  - FEELING HOT [None]
  - HEADACHE [None]
  - INSOMNIA [None]
  - INTRAOCULAR PRESSURE INCREASED [None]
  - MOTOR DYSFUNCTION [None]
  - OEDEMA PERIPHERAL [None]
  - PAIN IN EXTREMITY [None]
  - PARAESTHESIA [None]
  - RENAL TUBULAR DISORDER [None]
  - SINUS HEADACHE [None]
  - STRESS [None]
  - TEMPORAL ARTERITIS [None]
  - TINNITUS [None]
  - VASCULITIS [None]
